FAERS Safety Report 9254203 (Version 1)
Quarter: 2013Q2

REPORT INFORMATION
  Report Type: Spontaneous
  Country: DZ (occurrence: DZ)
  Receive Date: 20130425
  Receipt Date: 20130425
  Transmission Date: 20140414
  Serious: Yes (Life-Threatening)
  Sender: FDA-Public Use
  Company Number: PHHY2013DZ039310

PATIENT
  Age: 23 Year
  Sex: Female

DRUGS (3)
  1. EXJADE [Suspect]
     Indication: SICKLE CELL ANAEMIA
     Dosage: 25 MG, PER KG PER DAY
     Route: 048
     Dates: start: 20130304, end: 20130408
  2. OSPEN [Concomitant]
     Dosage: 1 CAP PER DAY
  3. FOLIC ACID [Concomitant]
     Dosage: 1 DF, UNK

REACTIONS (4)
  - Suicidal ideation [Recovered/Resolved]
  - Asthenia [Recovered/Resolved]
  - Agitation [Recovered/Resolved]
  - Anxiety [Recovered/Resolved]
